FAERS Safety Report 10224967 (Version 1)
Quarter: 2014Q2

REPORT INFORMATION
  Report Type: Spontaneous
  Country: AU (occurrence: AU)
  Receive Date: 20140609
  Receipt Date: 20140609
  Transmission Date: 20141212
  Serious: Yes (Hospitalization)
  Sender: FDA-Public Use
  Company Number: AU-ELI_LILLY_AND_COMPANY-AU201405010198

PATIENT
  Age: 43 Year
  Sex: 0

DRUGS (5)
  1. ZYPREXA [Suspect]
     Indication: PRODUCT USED FOR UNKNOWN INDICATION
     Dosage: 10 MG, UNKNOWN
     Route: 065
     Dates: start: 20131128, end: 20131204
  2. LAMOTRIGINE [Suspect]
     Indication: PRODUCT USED FOR UNKNOWN INDICATION
     Dosage: 150 MG, QD
     Route: 065
     Dates: end: 20131204
  3. PIZOTIFEN MALATE [Concomitant]
     Indication: PRODUCT USED FOR UNKNOWN INDICATION
     Dosage: 1.5 MG, QD
     Route: 065
     Dates: end: 20131204
  4. QUETIAPINE [Concomitant]
     Indication: PRODUCT USED FOR UNKNOWN INDICATION
     Dosage: 25 MG, UNKNOWN
     Route: 065
     Dates: end: 20131204
  5. VENLAFAXINE HYDROCHLORIDE [Concomitant]
     Indication: PRODUCT USED FOR UNKNOWN INDICATION
     Dosage: 150 MG, QD
     Route: 065
     Dates: end: 20131204

REACTIONS (8)
  - Hallucination [Recovering/Resolving]
  - Confusional state [Recovering/Resolving]
  - Toxicity to various agents [Recovering/Resolving]
  - Insomnia [Recovering/Resolving]
  - Tachycardia [Not Recovered/Not Resolved]
  - Rash [Recovering/Resolving]
  - Disorientation [Recovering/Resolving]
  - Memory impairment [Recovering/Resolving]
